FAERS Safety Report 23026611 (Version 1)
Quarter: 2023Q4

REPORT INFORMATION
  Report Type: Spontaneous
  Country: US (occurrence: None)
  Receive Date: 20231002
  Receipt Date: 20231002
  Transmission Date: 20240110
  Serious: Yes (Other)
  Sender: FDA-Public Use
  Company Number: None

PATIENT
  Age: 40 Year
  Sex: Female

DRUGS (10)
  1. TREMFYA [Suspect]
     Active Substance: GUSELKUMAB
     Indication: Psoriasis
     Dosage: OTHER FREQUENCY : EVERY 2 MONTHS;?
     Route: 058
     Dates: start: 20210310
  2. TREMFYA [Suspect]
     Active Substance: GUSELKUMAB
     Dosage: OTHER FREQUENCY : EVERY 2 MONTHS;?
     Route: 058
  3. ACYCLOVIR [Concomitant]
     Active Substance: ACYCLOVIR
  4. ALBUEROL AER HFA [Concomitant]
  5. AMITRIPTYLIN [Concomitant]
  6. BENZONATATE [Concomitant]
     Active Substance: BENZONATATE
  7. LORAZEPAM [Concomitant]
  8. PROPRANOLOL [Concomitant]
  9. RIZATRIPTAN [Concomitant]
  10. VALACYCLOVIR [Concomitant]
     Active Substance: VALACYCLOVIR HYDROCHLORIDE

REACTIONS (1)
  - Dehydration [None]

NARRATIVE: CASE EVENT DATE: 20230101
